FAERS Safety Report 7314506-9 (Version None)
Quarter: 2011Q1

REPORT INFORMATION
  Report Type: 
  Country: None (occurrence: None)
  Receive Date: 20110225
  Receipt Date: 20101012
  Transmission Date: 20110831
  Serious: Yes (Other)
  Sender: FDA-Public Use
  Company Number: US-MYLANLABS-2010S1017030

PATIENT
  Age: 17 Year
  Sex: Female
  Weight: 46.72 kg

DRUGS (4)
  1. CLARAVIS [Suspect]
     Indication: ACNE
     Dates: start: 20100501, end: 20100601
  2. AMNESTEEM [Suspect]
     Indication: ACNE
     Dates: start: 20100601, end: 20100701
  3. AMNESTEEM [Suspect]
     Dates: start: 20100801, end: 20100801
  4. CLARAVIS [Suspect]
     Dates: start: 20100701, end: 20100801

REACTIONS (2)
  - DISTURBANCE IN ATTENTION [None]
  - IRRITABILITY [None]
